FAERS Safety Report 20281640 (Version 1)
Quarter: 2022Q1

REPORT INFORMATION
  Report Type: Spontaneous
  Country: US (occurrence: US)
  Receive Date: 20220103
  Receipt Date: 20220103
  Transmission Date: 20220423
  Serious: Yes (Other)
  Sender: FDA-Public Use
  Company Number: US-OYSTER POINT PHARMA, INC.-2021OYS00052

PATIENT
  Age: 61 Year
  Sex: Male
  Weight: 68.027 kg

DRUGS (5)
  1. TYRVAYA [Suspect]
     Active Substance: VARENICLINE TARTRATE
     Indication: Dry eye
     Dosage: 1 DOSAGE UNITS, 2X/DAY (12 HOURS APART)
     Dates: start: 20211126, end: 20211129
  2. NIFEDIPINE [Concomitant]
     Active Substance: NIFEDIPINE
  3. ASPIRIN [Concomitant]
     Active Substance: ASPIRIN
  4. PREDNISONE [Concomitant]
     Active Substance: PREDNISONE
  5. EYSUVIS [Concomitant]
     Active Substance: LOTEPREDNOL ETABONATE
     Dosage: OD, QD
     Route: 047

REACTIONS (1)
  - Epistaxis [Recovered/Resolved]

NARRATIVE: CASE EVENT DATE: 20211101
